FAERS Safety Report 14688498 (Version 2)
Quarter: 2018Q2

REPORT INFORMATION
  Report Type: Spontaneous
  Country: JP (occurrence: JP)
  Receive Date: 20180328
  Receipt Date: 20180611
  Transmission Date: 20180711
  Serious: Yes (Death)
  Sender: FDA-Public Use
  Company Number: JP-JNJFOC-20180336637

PATIENT
  Age: 77 Year
  Sex: Male

DRUGS (12)
  1. CANAGLIFLOZIN [Suspect]
     Active Substance: CANAGLIFLOZIN
     Indication: PRODUCT USED FOR UNKNOWN INDICATION
     Route: 048
     Dates: start: 20180211, end: 20180222
  2. GLIMEPIRIDE. [Suspect]
     Active Substance: GLIMEPIRIDE
     Indication: DIABETES MELLITUS
     Route: 048
     Dates: end: 20180222
  3. CILOSTAZOL. [Concomitant]
     Active Substance: CILOSTAZOL
     Route: 048
  4. RADICUT [Suspect]
     Active Substance: EDARAVONE
     Indication: PRODUCT USED FOR UNKNOWN INDICATION
     Route: 042
     Dates: start: 20180202, end: 20180215
  5. SEIBULE [Suspect]
     Active Substance: MIGLITOL
     Indication: DIABETES MELLITUS
     Route: 048
     Dates: end: 20180222
  6. NILVADIPINE [Concomitant]
     Active Substance: NILVADIPINE
     Indication: HYPERTENSION
     Route: 048
     Dates: end: 20180222
  7. CILOSTAZOL. [Suspect]
     Active Substance: CILOSTAZOL
     Indication: CEREBRAL INFARCTION
     Route: 048
     Dates: start: 20180203, end: 20180222
  8. APIDRA [Concomitant]
     Active Substance: INSULIN GLULISINE
     Indication: HYPERGLYCAEMIA
     Route: 058
     Dates: start: 20180213, end: 20180222
  9. TENELIA [Suspect]
     Active Substance: TENELIGLIPTIN
     Indication: DIABETES MELLITUS
     Route: 048
     Dates: start: 20180209, end: 20180222
  10. GLIMEPIRIDE. [Suspect]
     Active Substance: GLIMEPIRIDE
     Indication: DIABETES MELLITUS
     Route: 048
     Dates: start: 20180215, end: 20180222
  11. URIEF [Suspect]
     Active Substance: SILODOSIN
     Indication: NEUROGENIC BLADDER
     Route: 048
     Dates: start: 20180215, end: 20180222
  12. OZAGREL [Concomitant]
     Active Substance: OZAGREL
     Route: 042
     Dates: start: 20180202, end: 20180215

REACTIONS (5)
  - Pneumonia aspiration [Fatal]
  - Dehydration [Fatal]
  - Renal impairment [Fatal]
  - Acute kidney injury [Fatal]
  - Septic shock [Fatal]

NARRATIVE: CASE EVENT DATE: 20180220
